FAERS Safety Report 4321088-2 (Version None)
Quarter: 2004Q1

REPORT INFORMATION
  Report Type: 
  Country: None (occurrence: None)
  Receive Date: 20040322
  Receipt Date: 20030121
  Transmission Date: 20041129
  Serious: Yes (Other)
  Sender: FDA-Public Use
  Company Number: PHNU2003DE00635

PATIENT
  Age: 39 Year
  Sex: Female

DRUGS (2)
  1. TREVILOR - SLOW RELEASE [Concomitant]
     Indication: ATTENTION DEFICIT/HYPERACTIVITY DISORDER
     Dosage: 450 MG/DAY
     Route: 048
     Dates: start: 20020910
  2. RITALIN [Suspect]
     Dosage: 60 MG/DAY
     Route: 048
     Dates: start: 20020910

REACTIONS (7)
  - ABORTION INDUCED [None]
  - ANXIETY [None]
  - COMPLICATIONS OF MATERNAL EXPOSURE TO THERAPEUTIC DRUGS [None]
  - CONDITION AGGRAVATED [None]
  - DEPRESSIVE SYMPTOM [None]
  - MATERNAL DRUGS AFFECTING FOETUS [None]
  - PREGNANCY [None]
